FAERS Safety Report 15769937 (Version 1)
Quarter: 2018Q4

REPORT INFORMATION
  Report Type: Spontaneous
  Country: US (occurrence: US)
  Receive Date: 20181227
  Receipt Date: 20181227
  Transmission Date: 20190205
  Serious: No
  Sender: FDA-Public Use
  Company Number: None

PATIENT
  Age: 46 Year
  Sex: Male
  Weight: 58.5 kg

DRUGS (2)
  1. TOPROL XL [Concomitant]
     Active Substance: METOPROLOL SUCCINATE
  2. AIMOVIG [Suspect]
     Active Substance: ERENUMAB-AOOE
     Indication: MIGRAINE
     Dosage: 1 INJECTION(S); 1 SHOT A MONTH; INJECTED IN THIGH?
     Dates: start: 20180810

REACTIONS (2)
  - Pain in extremity [None]
  - Myalgia [None]

NARRATIVE: CASE EVENT DATE: 20181203
